FAERS Safety Report 7866800-0 (Version None)
Quarter: 2011Q4

REPORT INFORMATION
  Report Type: 
  Country: None (occurrence: None)
  Receive Date: 20111028
  Receipt Date: 20110823
  Transmission Date: 20120403
  Serious: No
  Sender: FDA-Public Use
  Company Number: US-GLAXOSMITHKLINE-A0942000A

PATIENT
  Age: 79 Year
  Sex: Male

DRUGS (11)
  1. FUROSEMIDE [Concomitant]
  2. ADVAIR DISKUS 100/50 [Suspect]
     Indication: DYSPNOEA
     Dosage: 1PUFF TWICE PER DAY
     Route: 055
     Dates: start: 20110801
  3. GLYBURIDE [Concomitant]
  4. METFORMIN HCL [Concomitant]
  5. RAMIPRIL [Concomitant]
  6. TRIAMTERENE AND HYDROCHLOROTHIAZIDE [Concomitant]
  7. HYDROCODONE BITARTRATE [Concomitant]
  8. PRASUGREL [Concomitant]
  9. LIPITOR [Concomitant]
  10. ISOSORBIDE DINITRATE [Concomitant]
  11. VITAMIN TAB [Concomitant]

REACTIONS (1)
  - DYSPHONIA [None]
